FAERS Safety Report 12918070 (Version 2)
Quarter: 2017Q4

REPORT INFORMATION
  Report Type: Other
  Country: US (occurrence: US)
  Receive Date: 20161107
  Receipt Date: 20171227
  Transmission Date: 20180320
  Serious: Yes (Other)
  Sender: FDA-Public Use
  Company Number: US-ACORDA-ACO_129755_2016

PATIENT
  Age: 52 Year
  Sex: Female

DRUGS (1)
  1. AMPYRA [Suspect]
     Active Substance: DALFAMPRIDINE
     Indication: MULTIPLE SCLEROSIS
     Dosage: 10 MG, Q 12 HRS
     Route: 048
     Dates: start: 20120706

REACTIONS (3)
  - Therapy cessation [Unknown]
  - Thrombosis [Unknown]
  - Gastrointestinal necrosis [Recovered/Resolved]

NARRATIVE: CASE EVENT DATE: 20161012
